FAERS Safety Report 8205163-8 (Version None)
Quarter: 2012Q1

REPORT INFORMATION
  Report Type: 
  Country: None (occurrence: None)
  Receive Date: 20120313
  Receipt Date: 20120305
  Transmission Date: 20120608
  Serious: Yes (Hospitalization)
  Sender: FDA-Public Use
  Company Number: FR-TEVA-327052ISR

PATIENT
  Age: 78 Year
  Sex: Female

DRUGS (1)
  1. OXALIPLATIN [Suspect]
     Indication: COLON CANCER
     Route: 042

REACTIONS (5)
  - MUSCLE SPASMS [None]
  - FEELING COLD [None]
  - TREMOR [None]
  - CHILLS [None]
  - BACK PAIN [None]
